FAERS Safety Report 17565775 (Version 1)
Quarter: 2020Q1

REPORT INFORMATION
  Report Type: Report from Study
  Country: US (occurrence: US)
  Receive Date: 20200320
  Receipt Date: 20200320
  Transmission Date: 20200409
  Serious: No
  Sender: FDA-Public Use
  Company Number: US-JNJFOC-20190402371

PATIENT
  Age: 73 Year
  Sex: Female
  Weight: 106.69 kg

DRUGS (10)
  1. STELARA [Suspect]
     Active Substance: USTEKINUMAB
     Indication: PSORIATIC ARTHROPATHY
     Route: 058
     Dates: start: 20190225
  2. CLONIDINE. [Concomitant]
     Active Substance: CLONIDINE
     Indication: BLOOD PRESSURE MEASUREMENT
     Route: 065
     Dates: start: 201009
  3. FLONASE [Concomitant]
     Active Substance: FLUTICASONE PROPIONATE
     Indication: MULTIPLE ALLERGIES
     Route: 065
  4. CETIRIZINE [Concomitant]
     Active Substance: CETIRIZINE HYDROCHLORIDE
     Route: 065
     Dates: start: 2005
  5. STELARA [Suspect]
     Active Substance: USTEKINUMAB
     Route: 058
     Dates: start: 20200224
  6. ALBUTEROL. [Concomitant]
     Active Substance: ALBUTEROL
     Indication: ASTHMA
     Route: 065
     Dates: start: 1964
  7. SYMBICORT [Concomitant]
     Active Substance: BUDESONIDE\FORMOTEROL FUMARATE DIHYDRATE
     Indication: ASTHMA
     Route: 065
     Dates: start: 199701
  8. STELARA [Suspect]
     Active Substance: USTEKINUMAB
     Indication: PSORIASIS
     Route: 058
     Dates: start: 20190328
  9. SALINE [Concomitant]
     Active Substance: SODIUM CHLORIDE
     Indication: MULTIPLE ALLERGIES
     Route: 065
  10. EPINEPHRINE. [Concomitant]
     Active Substance: EPINEPHRINE
     Indication: MULTIPLE ALLERGIES
     Route: 065

REACTIONS (34)
  - Hepatic steatosis [Unknown]
  - Diarrhoea [Unknown]
  - Nausea [Unknown]
  - Tinnitus [Not Recovered/Not Resolved]
  - Vision blurred [Not Recovered/Not Resolved]
  - Pain in extremity [Unknown]
  - Myalgia [Not Recovered/Not Resolved]
  - Tremor [Not Recovered/Not Resolved]
  - Joint swelling [Not Recovered/Not Resolved]
  - Incorrect dose administered [Unknown]
  - Asthma [Unknown]
  - Musculoskeletal chest pain [Unknown]
  - Mycotic allergy [Unknown]
  - Malaise [Unknown]
  - Acrochordon [Unknown]
  - Hypersensitivity [Unknown]
  - Psoriasis [Not Recovered/Not Resolved]
  - Abdominal distension [Unknown]
  - Feeling abnormal [Unknown]
  - Muscle spasms [Not Recovered/Not Resolved]
  - Blood glucose increased [Unknown]
  - Red blood cell sedimentation rate increased [Unknown]
  - Influenza like illness [Not Recovered/Not Resolved]
  - Pain [Unknown]
  - Chills [Not Recovered/Not Resolved]
  - Dyspnoea [Recovered/Resolved]
  - Viral infection [Unknown]
  - Arthralgia [Unknown]
  - Cough [Unknown]
  - Weight increased [Unknown]
  - Pruritus [Unknown]
  - Pyrexia [Not Recovered/Not Resolved]
  - Gastrointestinal disorder [Unknown]
  - Headache [Not Recovered/Not Resolved]

NARRATIVE: CASE EVENT DATE: 2019
